FAERS Safety Report 11766467 (Version 3)
Quarter: 2016Q1

REPORT INFORMATION
  Report Type: Spontaneous
  Country: US (occurrence: US)
  Receive Date: 20151123
  Receipt Date: 20160302
  Transmission Date: 20160525
  Serious: No
  Sender: FDA-Public Use
  Company Number: US-ASTRAZENECA-2015SF10274

PATIENT
  Age: 26889 Day
  Sex: Female
  Weight: 54 kg

DRUGS (11)
  1. MOVANTIK [Suspect]
     Active Substance: NALOXEGOL OXALATE
     Indication: CONSTIPATION
     Route: 048
     Dates: start: 201507
  2. MOVANTIK [Suspect]
     Active Substance: NALOXEGOL OXALATE
     Indication: CONSTIPATION
     Route: 048
  3. FENTANYL. [Concomitant]
     Active Substance: FENTANYL
     Indication: PAIN
     Route: 061
  4. LINZESS [Concomitant]
     Active Substance: LINACLOTIDE
     Indication: CONSTIPATION
     Dosage: 145 MG, UNKNOWN
  5. MEDIPINE [Concomitant]
     Indication: HYPERTENSION
     Route: 048
  6. ENALAPRIL [Concomitant]
     Active Substance: ENALAPRIL
     Indication: HYPERTENSION
     Route: 048
  7. ALDRONATE [Concomitant]
     Indication: BONE DENSITY ABNORMAL
     Route: 048
  8. HYDROCODONE [Concomitant]
     Active Substance: HYDROCODONE
     Indication: PAIN
     Dosage: 7.5 MG, 1 TO 2 TABS EVERY 4 TO 6 HOURS AS NEEDED
     Route: 048
  9. ATIVAN [Concomitant]
     Active Substance: LORAZEPAM
     Indication: ANXIETY
     Dosage: 1 MG, 4 TIMES A DAY AS NEEDED
     Route: 048
  10. ATIVAN [Concomitant]
     Active Substance: LORAZEPAM
     Indication: DEPRESSION
     Dosage: 1 MG, 4 TIMES A DAY AS NEEDED
     Route: 048
  11. METOPROLOL TARTRATE. [Concomitant]
     Active Substance: METOPROLOL TARTRATE
     Indication: HYPERTENSION
     Route: 048

REACTIONS (8)
  - Chills [Unknown]
  - Defaecation urgency [Unknown]
  - Drug ineffective [Unknown]
  - Gait disturbance [Unknown]
  - Hyperhidrosis [Not Recovered/Not Resolved]
  - Abdominal pain upper [Unknown]
  - Pain [Unknown]
  - Diarrhoea [Unknown]

NARRATIVE: CASE EVENT DATE: 20150916
